FAERS Safety Report 20224315 (Version 1)
Quarter: 2021Q4

REPORT INFORMATION
  Report Type: Spontaneous
  Country: JP (occurrence: JP)
  Receive Date: 20211223
  Receipt Date: 20211223
  Transmission Date: 20220303
  Serious: Yes (Other)
  Sender: FDA-Public Use
  Company Number: JP-COLLEGIUM PHARMACEUTICAL, INC.-2021CGM01288

PATIENT
  Age: 75 Year
  Sex: Male

DRUGS (4)
  1. TAPENTADOL [Suspect]
     Active Substance: TAPENTADOL
     Indication: Product used for unknown indication
     Dosage: 250 MG, 1X/DAY
     Route: 048
  2. TAPENTADOL [Suspect]
     Active Substance: TAPENTADOL
     Dosage: 300 MG, 1X/DAY
     Route: 048
  3. TAPENTADOL [Suspect]
     Active Substance: TAPENTADOL
     Dosage: 350 MG, 1X/DAY
     Route: 048
  4. FENTANYL CITRATE [Concomitant]
     Active Substance: FENTANYL CITRATE
     Dosage: 0.48 MG
     Route: 065

REACTIONS (1)
  - Delirium [Unknown]
